FAERS Safety Report 19203534 (Version 1)
Quarter: 2021Q2

REPORT INFORMATION
  Report Type: Spontaneous
  Country: US (occurrence: US)
  Receive Date: 20210503
  Receipt Date: 20210503
  Transmission Date: 20210717
  Serious: Yes (Hospitalization, Congenital Anomaly, Other)
  Sender: FDA-Public Use
  Company Number: US-EPICPHARMA-US-2021EPCLIT00475

PATIENT

DRUGS (3)
  1. RITUXIMAB. [Suspect]
     Active Substance: RITUXIMAB
     Indication: FOETAL EXPOSURE DURING PREGNANCY
     Route: 064
  2. OXYCODONE HYDROCHLORIDE. [Suspect]
     Active Substance: OXYCODONE HYDROCHLORIDE
     Indication: FOETAL EXPOSURE DURING PREGNANCY
     Route: 064
  3. SERTRALINE [Suspect]
     Active Substance: SERTRALINE HYDROCHLORIDE
     Indication: FOETAL EXPOSURE DURING PREGNANCY
     Route: 064

REACTIONS (14)
  - Thrombocytopenia neonatal [Unknown]
  - Clinodactyly [Unknown]
  - Hypotonia neonatal [Unknown]
  - Foetal exposure during pregnancy [Unknown]
  - Congenital nose malformation [Unknown]
  - Cyanosis neonatal [Unknown]
  - Micrognathia [Unknown]
  - Meconium aspiration syndrome [Unknown]
  - Congenital hair disorder [Unknown]
  - Drug withdrawal syndrome neonatal [Unknown]
  - Newborn persistent pulmonary hypertension [Unknown]
  - Jaundice [Unknown]
  - Congenital oral malformation [Unknown]
  - Neonatal respiratory acidosis [Unknown]
